FAERS Safety Report 4315569-5 (Version None)
Quarter: 2004Q1

REPORT INFORMATION
  Report Type: 
  Country: None (occurrence: None)
  Receive Date: 20040311
  Receipt Date: 20040304
  Transmission Date: 20041129
  Serious: Yes (Other)
  Sender: FDA-Public Use
  Company Number: FR-ROCHE-360901

PATIENT
  Sex: Male
  Weight: 80 kg

DRUGS (5)
  1. PEGASYS [Suspect]
     Indication: HEPATITIS C
     Route: 058
  2. COPEGUS [Suspect]
     Indication: HEPATITIS C
     Route: 048
  3. KALETRA [Concomitant]
     Indication: HIV INFECTION
  4. EPIVIR [Concomitant]
     Indication: HIV INFECTION
  5. VIREAD [Concomitant]
     Indication: HIV INFECTION

REACTIONS (4)
  - BLOOD BILIRUBIN INCREASED [None]
  - GAMMA-GLUTAMYLTRANSFERASE INCREASED [None]
  - HAEMOGLOBIN DECREASED [None]
  - JAUNDICE [None]
